FAERS Safety Report 14551357 (Version 1)
Quarter: 2018Q1

REPORT INFORMATION
  Report Type: Spontaneous
  Country: FR (occurrence: FR)
  Receive Date: 20180220
  Receipt Date: 20180220
  Transmission Date: 20180509
  Serious: Yes (Death, Life-Threatening, Hospitalization, Other)
  Sender: FDA-Public Use
  Company Number: FR-ACCORD-063364

PATIENT
  Age: 35 Year
  Sex: Female

DRUGS (3)
  1. MYCOPHENOLIC ACID. [Suspect]
     Active Substance: MYCOPHENOLIC ACID
     Indication: IMMUNOSUPPRESSANT DRUG THERAPY
  2. INSULIN [Concomitant]
     Active Substance: INSULIN NOS
     Indication: DIABETES MELLITUS
  3. TACROLIMUS. [Suspect]
     Active Substance: TACROLIMUS
     Indication: IMMUNOSUPPRESSANT DRUG THERAPY

REACTIONS (9)
  - Acute respiratory failure [Recovering/Resolving]
  - Influenza [Unknown]
  - Cytomegalovirus infection [Unknown]
  - Myelitis [Not Recovered/Not Resolved]
  - Mucormycosis [Unknown]
  - Pneumonia [Recovering/Resolving]
  - Cerebral haemorrhage [Fatal]
  - Phaehyphomycosis [Not Recovered/Not Resolved]
  - Pseudomonas infection [Unknown]

NARRATIVE: CASE EVENT DATE: 201303
